FAERS Safety Report 20390776 (Version 1)
Quarter: 2022Q1

REPORT INFORMATION
  Report Type: Spontaneous
  Country: CN (occurrence: CN)
  Receive Date: 20220128
  Receipt Date: 20220128
  Transmission Date: 20220423
  Serious: Yes (Other)
  Sender: FDA-Public Use
  Company Number: None

PATIENT
  Age: 20 Year
  Sex: Male
  Weight: 70 kg

DRUGS (2)
  1. OLANZAPINE [Suspect]
     Active Substance: OLANZAPINE
     Indication: Schizophrenia
     Route: 048
     Dates: start: 20210916
  2. OLANZAPINE [Suspect]
     Active Substance: OLANZAPINE
     Dosage: 10MG TWICE A DAY
     Route: 048
     Dates: start: 20210916, end: 20211101

REACTIONS (1)
  - Psychotic symptom [Recovering/Resolving]

NARRATIVE: CASE EVENT DATE: 20211020
